FAERS Safety Report 13446110 (Version 1)
Quarter: 2017Q2

REPORT INFORMATION
  Report Type: Report from Study
  Country: None (occurrence: SE)
  Receive Date: 20170417
  Receipt Date: 20170417
  Transmission Date: 20170830
  Serious: Yes (Hospitalization)
  Sender: FDA-Public Use
  Company Number: SE-ABBVIE-17K-150-1943142-00

PATIENT
  Age: 66 Year
  Sex: Male

DRUGS (2)
  1. DUODOPA [Suspect]
     Active Substance: CARBIDOPA\LEVODOPA
     Dosage: MD: 3 ML, CD:DAY TIME:11 ML/H AND NIGHT TIME:7 ML/H, XD:DAY TIME: 3ML AND NIGHT TIME: 2ML
     Route: 050
     Dates: start: 20170404
  2. DUODOPA [Suspect]
     Active Substance: CARBIDOPA\LEVODOPA
     Indication: PARKINSON^S DISEASE
     Route: 050
     Dates: start: 20170327, end: 20170404

REACTIONS (3)
  - C-reactive protein increased [Recovering/Resolving]
  - Pyrexia [Recovered/Resolved]
  - Abdominal pain [Not Recovered/Not Resolved]

NARRATIVE: CASE EVENT DATE: 201704
